FAERS Safety Report 22390425 (Version 1)
Quarter: 2023Q2

REPORT INFORMATION
  Report Type: Spontaneous
  Country: US (occurrence: None)
  Receive Date: 20230531
  Receipt Date: 20230531
  Transmission Date: 20230721
  Serious: No
  Sender: FDA-Public Use
  Company Number: None

PATIENT
  Age: 77 Year
  Sex: Male

DRUGS (1)
  1. ZARXIO [Suspect]
     Active Substance: FILGRASTIM-SNDZ
     Dosage: OTHER STRENGTH : 480/0.8 UG/ML;?
     Route: 058

REACTIONS (1)
  - Cardiopulmonary bypass [None]

NARRATIVE: CASE EVENT DATE: 20230531
